FAERS Safety Report 8336376-2 (Version None)
Quarter: 2012Q2

REPORT INFORMATION
  Report Type: 
  Country: None (occurrence: None)
  Receive Date: 20120504
  Receipt Date: 20120427
  Transmission Date: 20120825
  Serious: Yes (Other)
  Sender: FDA-Public Use
  Company Number: PHHY2012CA037135

PATIENT
  Sex: Female

DRUGS (3)
  1. FEMARA [Suspect]
     Dosage: UNK UKN, UNK
     Route: 048
  2. TRAVATAN [Concomitant]
  3. PREDNISONE TAB [Concomitant]

REACTIONS (1)
  - INTRAOCULAR PRESSURE INCREASED [None]
